FAERS Safety Report 16646669 (Version 1)
Quarter: 2019Q3

REPORT INFORMATION
  Report Type: Spontaneous
  Country: US (occurrence: US)
  Receive Date: 20190730
  Receipt Date: 20190730
  Transmission Date: 20191004
  Serious: Yes (Other)
  Sender: FDA-Public Use
  Company Number: US-MYLANLABS-2019M1065556

PATIENT
  Sex: Male
  Weight: 65 kg

DRUGS (1)
  1. DAPTOMYCIN. [Suspect]
     Active Substance: DAPTOMYCIN
     Indication: PRODUCT USED FOR UNKNOWN INDICATION
     Dosage: 10MLSYRINGE WITH250MG NORMAL SALINE/DOSE.50MG/ML
     Route: 042
     Dates: start: 20190711

REACTIONS (3)
  - Incorrect dose administered [Unknown]
  - Incorrect drug administration rate [Unknown]
  - Vein rupture [Unknown]

NARRATIVE: CASE EVENT DATE: 20190711
